FAERS Safety Report 6790071-X (Version None)
Quarter: 2010Q2

REPORT INFORMATION
  Report Type: 
  Country: None (occurrence: None)
  Receive Date: 20100624
  Receipt Date: 20100408
  Transmission Date: 20101027
  Serious: Yes (Death)
  Sender: FDA-Public Use
  Company Number: PHHY2010TN21934

PATIENT
  Age: 26 Year
  Sex: Female

DRUGS (5)
  1. TERBINAFINE HCL [Suspect]
     Dosage: 250 MG DAILY
  2. TERBINAFINE HCL [Suspect]
     Dosage: 500 MG PER DAY
  3. GRISEOFULVIN [Concomitant]
     Dosage: 20 MG/KG DAILY, SEVERAL OCCASSIONS
  4. GRISEOFULVIN [Concomitant]
     Dosage: 1000 MG/DAY
  5. KETOCONAZOLE [Concomitant]
     Route: 061

REACTIONS (12)
  - ABSCESS FUNGAL [None]
  - ACUTE RESPIRATORY DISTRESS SYNDROME [None]
  - DERMATOPHYTOSIS [None]
  - DYSPNOEA [None]
  - FISTULA [None]
  - GRANULOMA [None]
  - LYMPHADENOPATHY [None]
  - PERITONSILLAR ABSCESS [None]
  - PHARYNGEAL ABSCESS [None]
  - SKIN LESION [None]
  - TRICHOPHYTOSIS [None]
  - UPPER AIRWAY OBSTRUCTION [None]
